FAERS Safety Report 7448061-X (Version None)
Quarter: 2011Q2

REPORT INFORMATION
  Report Type: 
  Country: None (occurrence: None)
  Receive Date: 20110429
  Receipt Date: 20100415
  Transmission Date: 20111010
  Serious: No
  Sender: FDA-Public Use
  Company Number: US-ASTRAZENECA-2010SE15202

PATIENT
  Age: 522 Month
  Sex: Male

DRUGS (8)
  1. DEPAKOTE [Concomitant]
     Indication: AFFECTIVE DISORDER
  2. NEXIUM [Suspect]
     Indication: GASTROOESOPHAGEAL REFLUX DISEASE
     Route: 048
  3. SEROQUEL [Suspect]
     Indication: MOOD SWINGS
     Route: 048
     Dates: start: 20090101, end: 20100301
  4. CRESTOR [Suspect]
     Indication: BLOOD CHOLESTEROL INCREASED
     Route: 048
  5. SEROQUEL [Suspect]
     Route: 048
     Dates: start: 20090101, end: 20100301
  6. SEROQUEL [Suspect]
     Indication: INSOMNIA
     Route: 048
     Dates: start: 20090101, end: 20100301
  7. SEROQUEL [Suspect]
     Route: 048
     Dates: start: 20090101, end: 20100301
  8. TRAZODONE HCL [Concomitant]
     Indication: SLEEP DISORDER

REACTIONS (3)
  - DRUG DOSE OMISSION [None]
  - TREMOR [None]
  - HEADACHE [None]
